FAERS Safety Report 6888673-5 (Version None)
Quarter: 2010Q3

REPORT INFORMATION
  Report Type: 
  Country: None (occurrence: None)
  Receive Date: 20100730
  Receipt Date: 20071022
  Transmission Date: 20110219
  Serious: No
  Sender: FDA-Public Use
  Company Number: US-PFIZER INC-2007068735

PATIENT
  Sex: Male
  Weight: 65.77 kg

DRUGS (2)
  1. LIPITOR [Suspect]
     Indication: BLOOD CHOLESTEROL INCREASED
     Dosage: ^10/20MG^
     Dates: start: 20070701
  2. ALCOHOL [Suspect]

REACTIONS (1)
  - INSOMNIA [None]
